FAERS Safety Report 9933201 (Version 1)
Quarter: 2014Q1

REPORT INFORMATION
  Report Type: Spontaneous
  Country: US (occurrence: US)
  Receive Date: 20140228
  Receipt Date: 20140228
  Transmission Date: 20141002
  Serious: No
  Sender: FDA-Public Use
  Company Number: US-GLAXOSMITHKLINE-A1054913A

PATIENT
  Age: 34 Year
  Sex: Female

DRUGS (3)
  1. LAMICTAL [Suspect]
     Indication: BIPOLAR II DISORDER
     Dosage: 150MG TWICE PER DAY
     Route: 048
     Dates: start: 2009, end: 20131230
  2. LAMOTRIGINE [Suspect]
     Indication: BIPOLAR II DISORDER
     Route: 048
     Dates: end: 20131224
  3. NO CONCURRENT MEDICATION [Concomitant]

REACTIONS (11)
  - Vulvovaginal burning sensation [Unknown]
  - Condition aggravated [Unknown]
  - Abnormal dreams [Unknown]
  - Nightmare [Unknown]
  - Nasopharyngitis [Unknown]
  - Feeling hot [Unknown]
  - Oropharyngeal pain [Unknown]
  - Fatigue [Unknown]
  - Night sweats [Unknown]
  - Mood altered [Unknown]
  - Adverse event [Unknown]
